FAERS Safety Report 8851104 (Version 3)
Quarter: 2013Q3

REPORT INFORMATION
  Report Type: Report from Study
  Country: JP (occurrence: JP)
  Receive Date: 20121019
  Receipt Date: 20130920
  Transmission Date: 20140515
  Serious: Yes (Hospitalization)
  Sender: FDA-Public Use
  Company Number: JP-VERTEX PHARMACEUTICAL INC.-2012-023146

PATIENT
  Age: 59 Year
  Sex: Female

DRUGS (22)
  1. VX-950 (TELAPREVIR) [Suspect]
     Indication: CHRONIC HEPATITIS C
     Dosage: 2250 MG, QD
     Route: 048
     Dates: start: 20120409, end: 20120414
  2. VX-950 (TELAPREVIR) [Suspect]
     Dosage: 1500 MG, QD
     Route: 048
     Dates: start: 20120415, end: 20120701
  3. REBETOL [Suspect]
     Indication: CHRONIC HEPATITIS C
     Dosage: 800 MG, QD
     Route: 048
     Dates: start: 20120409, end: 20120423
  4. REBETOL [Suspect]
     Dosage: 400 MG, QD
     Route: 048
     Dates: start: 20120424, end: 20120507
  5. REBETOL [Suspect]
     Dosage: 200 MG, QD
     Route: 048
     Dates: start: 20120508, end: 20120603
  6. REBETOL [Suspect]
     Dosage: 400 MG, QD
     Route: 048
     Dates: start: 20120604, end: 20120701
  7. REBETOL [Suspect]
     Dosage: 800 MG, QD
     Route: 048
     Dates: start: 20120702, end: 20120930
  8. PEGINTRON [Suspect]
     Indication: CHRONIC HEPATITIS C
     Dosage: 1.5 ?G/KG, QW
     Route: 058
     Dates: start: 20120409, end: 20120813
  9. PEGINTRON [Suspect]
     Dosage: 1.5 ?G/KG, QW
     Route: 058
     Dates: start: 20120824, end: 20120924
  10. PREDONINE [Suspect]
     Indication: RASH
     Dosage: 6 DF, QD
     Route: 048
     Dates: start: 20120618, end: 20120702
  11. PREDONINE [Suspect]
     Dosage: 5 DF, QD
     Route: 048
     Dates: start: 20120703, end: 20120716
  12. PREDONINE [Suspect]
     Dosage: 4 DF, QD
     Route: 048
     Dates: start: 20120717, end: 20120730
  13. PREDONINE [Suspect]
     Dosage: 3 DF, QD
     Route: 048
     Dates: start: 20120731, end: 20120813
  14. PREDONINE [Suspect]
     Dosage: 2 DF, QD
     Route: 048
     Dates: start: 20120814, end: 20120821
  15. PREDONINE [Suspect]
     Dosage: 1 DF, QD
     Route: 048
     Dates: start: 20120822, end: 20120927
  16. SELBEX [Concomitant]
     Dosage: UNK, PRN
     Route: 048
     Dates: start: 20120409, end: 20120927
  17. SOLDEM 3A [Concomitant]
     Dosage: 200 ML, QD
     Route: 042
     Dates: start: 20120816, end: 20120816
  18. CEFMETAZOLE NA [Concomitant]
     Dosage: 2 G, QD
     Route: 042
     Dates: start: 20120817, end: 20120823
  19. SOLACET F [Concomitant]
     Dosage: 1000 ML, QD
     Route: 042
     Dates: start: 20120817, end: 20120817
  20. SOLDEM 1 [Concomitant]
     Dosage: 1000 ML, QD
     Route: 042
     Dates: start: 20120817, end: 20120818
  21. VOLTAREN [Concomitant]
     Dosage: UNK, PRN
     Route: 054
     Dates: start: 20120817, end: 20120822
  22. LOXOPROFEN [Concomitant]
     Dosage: UNK, PRN
     Route: 048
     Dates: start: 20120409, end: 20120927

REACTIONS (1)
  - Sinusitis [Recovered/Resolved]
